FAERS Safety Report 6110625-3 (Version None)
Quarter: 2009Q1

REPORT INFORMATION
  Report Type: 
  Country: None (occurrence: None)
  Receive Date: 20090306
  Receipt Date: 20090225
  Transmission Date: 20090719
  Serious: Yes (Death, Hospitalization, Other)
  Sender: FDA-Public Use
  Company Number: A-US2004-05869

PATIENT
  Age: 71 Year
  Sex: Female

DRUGS (9)
  1. TRACLEER [Suspect]
     Indication: PULMONARY ARTERIAL HYPERTENSION
     Dosage: 32.5 MG, QD, ORAL
     Route: 048
     Dates: start: 20040324, end: 20081008
  2. REVATIO [Concomitant]
  3. RAPAMUNE [Concomitant]
  4. AMIODARONE HCL [Concomitant]
  5. ATORVASTATIN [Concomitant]
  6. HYDROCHLOROTHIAZIDE [Concomitant]
  7. LEVOTHYROXINE [Concomitant]
  8. MAG-OX (MAGNESIUM OXIDE) [Concomitant]
  9. ROCALTROL [Concomitant]

REACTIONS (10)
  - ANAEMIA [None]
  - DISEASE PROGRESSION [None]
  - DRUG INTERACTION [None]
  - GASTROINTESTINAL HAEMORRHAGE [None]
  - HEPATIC FAILURE [None]
  - MENTAL STATUS CHANGES [None]
  - PACKED RED BLOOD CELL TRANSFUSION [None]
  - PNEUMONIA [None]
  - PULMONARY ARTERIAL HYPERTENSION [None]
  - RESPIRATORY FAILURE [None]
